FAERS Safety Report 4472217-1 (Version None)
Quarter: 2004Q4

REPORT INFORMATION
  Report Type: 
  Country: None (occurrence: None)
  Receive Date: 20041012
  Receipt Date: 20041005
  Transmission Date: 20050328
  Serious: Yes (Hospitalization, Other)
  Sender: FDA-Public Use
  Company Number: US-MERCK-0410USA00672

PATIENT
  Age: 72 Year
  Sex: Male

DRUGS (2)
  1. ACCUPRIL [Concomitant]
     Route: 065
  2. VIOXX [Suspect]
     Route: 048
     Dates: start: 20030101

REACTIONS (7)
  - BLOOD PRESSURE DECREASED [None]
  - DIZZINESS [None]
  - DYSSTASIA [None]
  - FEELING HOT [None]
  - HYPERHIDROSIS [None]
  - PALLOR [None]
  - TREMOR [None]
